FAERS Safety Report 20869825 (Version 17)
Quarter: 2025Q1

REPORT INFORMATION
  Report Type: Report from Study
  Country: US (occurrence: US)
  Receive Date: 20220525
  Receipt Date: 20250319
  Transmission Date: 20250408
  Serious: Yes (Hospitalization, Other)
  Sender: TAKEDA
  Company Number: US-TAKEDA-2021TUS048519

PATIENT
  Age: 37 Year
  Sex: Female
  Weight: 88 kg

DRUGS (70)
  1. HUMAN IMMUNOGLOBULIN G [Suspect]
     Active Substance: HUMAN IMMUNOGLOBULIN G
     Indication: Asthma
     Dosage: 10 GRAM, 1/WEEK
     Dates: start: 20210725
  2. HUMAN IMMUNOGLOBULIN G [Suspect]
     Active Substance: HUMAN IMMUNOGLOBULIN G
     Indication: Pulmonary eosinophilia
  3. HUMAN IMMUNOGLOBULIN G [Suspect]
     Active Substance: HUMAN IMMUNOGLOBULIN G
     Indication: Immune system disorder
  4. HUMAN IMMUNOGLOBULIN G [Suspect]
     Active Substance: HUMAN IMMUNOGLOBULIN G
     Indication: Hypergammaglobulinaemia
  5. GAMMAGARD LIQUID [Suspect]
     Active Substance: HUMAN IMMUNOGLOBULIN G
     Indication: Asthma
     Dosage: 30 GRAM, Q4WEEKS
     Dates: start: 20220104
  6. GAMMAGARD LIQUID [Suspect]
     Active Substance: HUMAN IMMUNOGLOBULIN G
     Indication: Immunodeficiency common variable
  7. HYQVIA [Suspect]
     Active Substance: HUMAN IMMUNOGLOBULIN G\HYALURONIDASE (HUMAN RECOMBINANT)
     Indication: Immune system disorder
     Dosage: 30 GRAM, Q4WEEKS
     Dates: start: 20240630
  8. HYQVIA [Suspect]
     Active Substance: HUMAN IMMUNOGLOBULIN G\HYALURONIDASE (HUMAN RECOMBINANT)
     Indication: Hypergammaglobulinaemia
     Dosage: 27.5 GRAM, Q4WEEKS
  9. ACETAMINOPHEN [Concomitant]
     Active Substance: ACETAMINOPHEN
  10. DIPHENHYDRAMINE [Concomitant]
     Active Substance: DIPHENHYDRAMINE
  11. FAMOTIDINE [Concomitant]
     Active Substance: FAMOTIDINE
  12. KETOROLAC TROMETHAMINE [Concomitant]
     Active Substance: KETOROLAC TROMETHAMINE
  13. LIDOCAINE [Concomitant]
     Active Substance: LIDOCAINE
  14. SODIUM CHLORIDE [Concomitant]
     Active Substance: SODIUM CHLORIDE
  15. SODIUM CHLORIDE [Concomitant]
     Active Substance: SODIUM CHLORIDE
  16. ONDANSETRON [Concomitant]
     Active Substance: ONDANSETRON
  17. EPINEPHRINE [Concomitant]
     Active Substance: EPINEPHRINE
  18. TRELEGY ELLIPTA [Concomitant]
     Active Substance: FLUTICASONE FUROATE\UMECLIDINIUM BROMIDE\VILANTEROL TRIFENATATE
  19. OMEPRAZOLE [Concomitant]
     Active Substance: OMEPRAZOLE
  20. SOLU-MEDROL [Concomitant]
     Active Substance: METHYLPREDNISOLONE SODIUM SUCCINATE
  21. AMLODIPINE BESYLATE [Concomitant]
     Active Substance: AMLODIPINE BESYLATE
  22. LANTUS [Concomitant]
     Active Substance: INSULIN GLARGINE
  23. LYRICA [Concomitant]
     Active Substance: PREGABALIN
  24. TIZANIDINE [Concomitant]
     Active Substance: TIZANIDINE
  25. LINZESS [Concomitant]
     Active Substance: LINACLOTIDE
  26. ROSUVASTATIN [Concomitant]
     Active Substance: ROSUVASTATIN
  27. MONTELUKAST [Concomitant]
     Active Substance: MONTELUKAST
  28. VITAMIN D2 [Concomitant]
     Active Substance: ERGOCALCIFEROL
  29. PROAIR HFA [Concomitant]
     Active Substance: ALBUTEROL SULFATE
  30. TEMAZEPAM [Concomitant]
     Active Substance: TEMAZEPAM
  31. TOPROL XL [Concomitant]
     Active Substance: METOPROLOL SUCCINATE
  32. XHANCE [Concomitant]
     Active Substance: FLUTICASONE PROPIONATE
  33. TOPROL XL [Concomitant]
     Active Substance: METOPROLOL SUCCINATE
  34. VITAMIN D [Concomitant]
     Active Substance: VITAMIN D NOS
  35. Lmx [Concomitant]
  36. MAGNESIUM [Concomitant]
     Active Substance: MAGNESIUM
  37. MELOXICAM [Concomitant]
     Active Substance: MELOXICAM
  38. ROSUVASTATIN CALCIUM [Concomitant]
     Active Substance: ROSUVASTATIN CALCIUM
  39. HUMALOG [Concomitant]
     Active Substance: INSULIN LISPRO
  40. ALLEGRA ALLERGY [Concomitant]
     Active Substance: FEXOFENADINE HYDROCHLORIDE
  41. BREZTRI [Concomitant]
     Active Substance: BUDESONIDE\FORMOTEROL\GLYCOPYRROLATE
  42. DULOXETINE HYDROCHLORIDE [Concomitant]
     Active Substance: DULOXETINE HYDROCHLORIDE
  43. ALBUTEROL SULFATE [Concomitant]
     Active Substance: ALBUTEROL SULFATE
  44. Aspirin;Butalbital;Caffeine [Concomitant]
  45. BAYER ASPIRIN [Concomitant]
     Active Substance: ASPIRIN
  46. PROAIR HFA [Concomitant]
     Active Substance: ALBUTEROL SULFATE
  47. BENZONATATE [Concomitant]
     Active Substance: BENZONATATE
  48. LEVETIRACETAM [Concomitant]
     Active Substance: LEVETIRACETAM
  49. PROMETHAZINE HYDROCHLORIDE [Concomitant]
     Active Substance: PROMETHAZINE HYDROCHLORIDE
  50. DIPHENHYDRAMINE HYDROCHLORIDE [Concomitant]
     Active Substance: DIPHENHYDRAMINE HYDROCHLORIDE
  51. QNASL [Concomitant]
     Active Substance: BECLOMETHASONE DIPROPIONATE
  52. FLUCONAZOLE [Concomitant]
     Active Substance: FLUCONAZOLE
  53. HAILEY FE 1.5/30 [Concomitant]
     Active Substance: ETHINYL ESTRADIOL\FERROUS FUMARATE\NORETHINDRONE ACETATE
  54. ACETAMINOPHEN\BUTALBITAL\CAFFEINE\CODEINE PHOSPHATE [Concomitant]
     Active Substance: ACETAMINOPHEN\BUTALBITAL\CAFFEINE\CODEINE PHOSPHATE
  55. AIMOVIG [Concomitant]
     Active Substance: ERENUMAB-AOOE
  56. TOPIRAMATE [Concomitant]
     Active Substance: TOPIRAMATE
  57. ACTOS [Concomitant]
     Active Substance: PIOGLITAZONE HYDROCHLORIDE
  58. UBRELVY [Concomitant]
     Active Substance: UBROGEPANT
  59. CARVEDILOL [Concomitant]
     Active Substance: CARVEDILOL
  60. DICYCLOMINE HYDROCHLORIDE [Concomitant]
     Active Substance: DICYCLOMINE HYDROCHLORIDE
  61. DICYCLOMINE [Concomitant]
     Active Substance: DICYCLOMINE HYDROCHLORIDE
  62. PROMETHAZINE [Concomitant]
     Active Substance: PROMETHAZINE HYDROCHLORIDE
  63. VITAMIN D3 [Concomitant]
     Active Substance: CHOLECALCIFEROL
  64. TIZANIDINE HYDROCHLORIDE [Concomitant]
     Active Substance: TIZANIDINE HYDROCHLORIDE
  65. MONTELUKAST SODIUM [Concomitant]
     Active Substance: MONTELUKAST SODIUM
  66. ONDANSETRON HYDROCHLORIDE [Concomitant]
     Active Substance: ONDANSETRON HYDROCHLORIDE
  67. LEVALBUTEROL HYDROCHLORIDE [Concomitant]
     Active Substance: LEVALBUTEROL HYDROCHLORIDE
  68. TRAMADOL [Concomitant]
     Active Substance: TRAMADOL
  69. TRAMADOL HCL [Concomitant]
     Active Substance: TRAMADOL HYDROCHLORIDE
  70. AIRSUPRA [Concomitant]
     Active Substance: ALBUTEROL SULFATE\BUDESONIDE

REACTIONS (34)
  - Seizure [Recovered/Resolved]
  - Diabetic ketoacidosis [Recovered/Resolved]
  - Pneumonia [Recovered/Resolved]
  - Stress [Recovered/Resolved]
  - Otitis media [Recovered/Resolved]
  - Eye discharge [Recovered/Resolved]
  - Ophthalmic migraine [Recovered/Resolved]
  - Oesophagitis [Recovered/Resolved]
  - Ventricular extrasystoles [Recovered/Resolved]
  - Heart rate abnormal [Recovered/Resolved]
  - Blood pressure systolic abnormal [Recovered/Resolved]
  - Body temperature increased [Recovered/Resolved]
  - Blood pressure increased [Recovered/Resolved]
  - Malaise [Recovered/Resolved]
  - Hypertension [Recovered/Resolved]
  - Ear infection [Recovered/Resolved]
  - Product dose omission issue [Recovered/Resolved]
  - Illness [Recovered/Resolved]
  - Injury associated with device [Recovered/Resolved]
  - Infusion related reaction [Recovered/Resolved]
  - Injection site bruising [Recovered/Resolved]
  - Off label use [Recovered/Resolved]
  - Hypoaesthesia [Recovered/Resolved]
  - Infusion site warmth [Recovered/Resolved]
  - Somnolence [Recovered/Resolved]
  - Infusion site bruising [Recovered/Resolved]
  - Infusion site erythema [Recovered/Resolved]
  - Injection site pain [Recovered/Resolved]
  - Infusion site pruritus [Recovered/Resolved]
  - Pyrexia [Recovered/Resolved]
  - Infusion site pain [Recovered/Resolved]
  - Nausea [Recovered/Resolved]
  - Fatigue [Recovered/Resolved]
  - Headache [Recovered/Resolved]

NARRATIVE: CASE EVENT DATE: 20210725
